FAERS Safety Report 5669622-4 (Version None)
Quarter: 2008Q1

REPORT INFORMATION
  Report Type: 
  Country: None (occurrence: None)
  Receive Date: 20080317
  Receipt Date: 20080312
  Transmission Date: 20080703
  Serious: Yes (Other)
  Sender: FDA-Public Use
  Company Number: PHNU2008DE01271

PATIENT
  Sex: Female
  Weight: 55 kg

DRUGS (3)
  1. CICLORAL HEXAL (NGX) [Suspect]
     Indication: RENAL TRANSPLANT
     Dosage: 250MG/DAY
     Route: 048
     Dates: start: 19900101, end: 20070901
  2. PROGRAF [Suspect]
     Indication: RENAL TRANSPLANT
     Dosage: 2MG/DAY
     Route: 048
     Dates: start: 20070901, end: 20071001
  3. SANDIMMUNE [Suspect]
     Indication: RENAL TRANSPLANT
     Dosage: 250MG/DAY
     Route: 048
     Dates: start: 19900101, end: 20070901

REACTIONS (1)
  - NEURODERMATITIS [None]
